FAERS Safety Report 18069839 (Version 1)
Quarter: 2020Q3

REPORT INFORMATION
  Report Type: Spontaneous
  Country: US (occurrence: US)
  Receive Date: 20200727
  Receipt Date: 20200727
  Transmission Date: 20201103
  Serious: No
  Sender: FDA-Public Use
  Company Number: US-AMAG PHARMACEUTICALS, INC.-AMAG202002122

PATIENT
  Age: 69 Year
  Sex: Female
  Weight: 52.21 kg

DRUGS (2)
  1. PRAVASTATIN. [Concomitant]
     Active Substance: PRAVASTATIN
     Indication: BLOOD CHOLESTEROL INCREASED
  2. INTRAROSA [Suspect]
     Active Substance: PRASTERONE
     Indication: ATROPHIC VULVOVAGINITIS
     Dosage: TOOK 2 DAYS FOR WEEK FROM THE MIDDLE OF JANUARY UNTIL 09APR2020 TOOK 7DAYS/WEEK FROM 10APR2020 TO 30
     Route: 067
     Dates: start: 202001, end: 20200430

REACTIONS (13)
  - Blood pressure systolic decreased [Recovered/Resolved]
  - Confusional state [Recovered/Resolved]
  - Weight decreased [Recovered/Resolved]
  - Pollakiuria [Recovered/Resolved]
  - Night sweats [Recovered/Resolved]
  - Off label use [Unknown]
  - Dizziness [Recovered/Resolved]
  - Anxiety [Recovered/Resolved]
  - Mood altered [Recovered/Resolved]
  - Abdominal pain [Recovered/Resolved]
  - Hot flush [Recovered/Resolved]
  - Groin pain [Recovered/Resolved]
  - Feeling jittery [Recovered/Resolved]

NARRATIVE: CASE EVENT DATE: 202001
